FAERS Safety Report 13187960 (Version 4)
Quarter: 2017Q2

REPORT INFORMATION
  Report Type: Spontaneous
  Country: NL (occurrence: NL)
  Receive Date: 20170206
  Receipt Date: 20170406
  Transmission Date: 20170830
  Serious: Yes (Hospitalization, Other)
  Sender: FDA-Public Use
  Company Number: PHHY2017NL016367

PATIENT

DRUGS (3)
  1. VOTRIENT [Suspect]
     Active Substance: PAZOPANIB HYDROCHLORIDE
     Indication: CLEAR CELL RENAL CELL CARCINOMA
     Dosage: 800 MG, QD (2 DF ONCE DAILY)
     Route: 048
     Dates: start: 20170121, end: 20170126
  2. DICLOFENAC [Concomitant]
     Active Substance: DICLOFENAC
     Indication: BACK PAIN
     Dosage: 75 MG, QD
     Route: 065
     Dates: start: 2010, end: 20170127
  3. OXAZEPAM. [Concomitant]
     Active Substance: OXAZEPAM
     Indication: SLEEP DISORDER
     Dosage: 10 MG, UNK
     Route: 065
     Dates: start: 2015

REACTIONS (21)
  - Acute kidney injury [Unknown]
  - Hyperkalaemia [Unknown]
  - Vomiting [Unknown]
  - Malignant neoplasm progression [Unknown]
  - Abdominal pain [Unknown]
  - Tumour lysis syndrome [Recovered/Resolved]
  - Hypocalcaemia [Unknown]
  - Fatigue [Unknown]
  - Hyperuricaemia [Unknown]
  - Diverticulitis [Unknown]
  - Diverticular perforation [Unknown]
  - Malaise [Unknown]
  - Decreased appetite [Unknown]
  - Metastases to central nervous system [Unknown]
  - Diarrhoea [Unknown]
  - Hyperphosphatasaemia [Unknown]
  - Nausea [Unknown]
  - Pruritus [Unknown]
  - Hepatotoxicity [Recovered/Resolved]
  - Clear cell renal cell carcinoma [Unknown]
  - Mental disorder [Unknown]

NARRATIVE: CASE EVENT DATE: 20170127
